FAERS Safety Report 15474892 (Version 3)
Quarter: 2023Q4

REPORT INFORMATION
  Report Type: Spontaneous
  Country: FR (occurrence: FR)
  Receive Date: 20181008
  Receipt Date: 20231109
  Transmission Date: 20240109
  Serious: Yes (Other)
  Sender: FDA-Public Use
  Company Number: None

PATIENT
  Age: 78 Year
  Sex: Male
  Weight: 48 kg

DRUGS (15)
  1. LANSOPRAZOLE [Interacting]
     Active Substance: LANSOPRAZOLE
     Indication: Gastrooesophageal reflux disease
     Dosage: 15 MILLIGRAM, QD
     Route: 048
  2. TEGRETOL [Interacting]
     Active Substance: CARBAMAZEPINE
     Indication: Psychotic disorder
     Dosage: 200 MILLIGRAM, QD
     Route: 048
  3. TRIHEXYPHENIDYL HYDROCHLORIDE [Interacting]
     Active Substance: TRIHEXYPHENIDYL HYDROCHLORIDE
     Indication: Psychotic disorder
     Dosage: 5 MILLIGRAM, QD
     Route: 048
  4. CYAMEMAZINE [Interacting]
     Active Substance: CYAMEMAZINE
     Indication: Psychotic disorder
     Dosage: 25 MILLIGRAM, QD
     Route: 048
  5. HALDOL [Interacting]
     Active Substance: HALOPERIDOL
     Indication: Psychotic disorder
     Dosage: 10 MILLIGRAM, QD
     Route: 048
  6. HALDOL [Interacting]
     Active Substance: HALOPERIDOL
     Dosage: 10 MILLIGRAM, QD
     Route: 048
  7. CYAMEMAZINE [Interacting]
     Active Substance: CYAMEMAZINE
     Indication: Psychotic disorder
     Dosage: 50 MILLIGRAM, QD
     Route: 048
  8. ZOPICLONE [Concomitant]
     Active Substance: ZOPICLONE
     Indication: Sleep disorder
     Dosage: 7.5 MILLIGRAM
     Route: 065
     Dates: end: 20160622
  9. ZOPICLONE [Concomitant]
     Active Substance: ZOPICLONE
     Dosage: UNK, QD
     Route: 065
  10. ZOLPIDEM [Concomitant]
     Active Substance: ZOLPIDEM TARTRATE
     Indication: Sleep disorder
     Dosage: 0.5 DOSAGE FORM, QD
     Route: 065
     Dates: end: 20160622
  11. POTASSIUM CHLORIDE [Concomitant]
     Active Substance: POTASSIUM CHLORIDE
     Indication: Hypokalaemia
     Dosage: 1 DOSAGE FORM, QD
     Route: 065
     Dates: end: 20160622
  12. LOVENOX [Concomitant]
     Active Substance: ENOXAPARIN SODIUM
     Indication: Phlebitis
     Dosage: 0.6 MILLILITER, BID
     Route: 065
     Dates: start: 20160603
  13. WARFARIN SODIUM [Concomitant]
     Active Substance: WARFARIN SODIUM
     Indication: Product used for unknown indication
     Dosage: 4 MILLIGRAM, QD
     Route: 065
     Dates: start: 20160606
  14. WARFARIN SODIUM [Concomitant]
     Active Substance: WARFARIN SODIUM
     Dosage: 7 MILLIGRAM, QD
     Route: 065
     Dates: start: 20160617
  15. WARFARIN SODIUM [Concomitant]
     Active Substance: WARFARIN SODIUM
     Dosage: 7 MILLIGRAM, QD
     Route: 065
     Dates: start: 20180617

REACTIONS (2)
  - International normalised ratio decreased [Recovered/Resolved]
  - Drug interaction [Unknown]

NARRATIVE: CASE EVENT DATE: 20160616
